FAERS Safety Report 6381468-0 (Version None)
Quarter: 2009Q3

REPORT INFORMATION
  Report Type: 
  Country: None (occurrence: None)
  Receive Date: 20090929
  Receipt Date: 20090715
  Transmission Date: 20100115
  Serious: No
  Sender: FDA-Public Use
  Company Number: US-ALLERGAN-0909661US

PATIENT
  Age: 80 Year
  Sex: Female

DRUGS (4)
  1. RESTASIS [Suspect]
     Indication: DRY EYE
     Route: 047
  2. BLEPHAMIDE [Suspect]
     Indication: EYE IRRITATION
     Dosage: 1 GTT, QHS
     Route: 047
     Dates: start: 20090711, end: 20090712
  3. BLEPHAMIDE [Suspect]
     Indication: EYE PRURITUS
  4. REFRESH PLUS [Concomitant]
     Indication: DRY EYE

REACTIONS (2)
  - EYE IRRITATION [None]
  - EYE PRURITUS [None]
